FAERS Safety Report 9201951 (Version 2)
Quarter: 2013Q3

REPORT INFORMATION
  Report Type: Report from Study
  Country: JP (occurrence: JP)
  Receive Date: 20130401
  Receipt Date: 20130708
  Transmission Date: 20140515
  Serious: Yes (Death)
  Sender: FDA-Public Use
  Company Number: JP-009507513-1304JPN000162

PATIENT
  Age: 73 Year
  Sex: Male

DRUGS (14)
  1. REMERON TABLETS 15MG [Suspect]
     Indication: DEPRESSION
     Dosage: 1 DF, QD
     Route: 048
     Dates: start: 20121019, end: 20121104
  2. MYSLEE [Concomitant]
     Indication: DEPRESSION
     Dosage: 10 MG, QD, FORMULATION: POR
     Route: 048
     Dates: end: 20121104
  3. MEILAX [Concomitant]
     Indication: DEPRESSION
     Dosage: 1 MG, QD, FORMULATION: POR
     Route: 048
     Dates: end: 20121104
  4. CONSTAN [Concomitant]
     Indication: DEPRESSION
     Dosage: 0-0.8MG/ DAY, FORMULATION: POR
     Route: 048
     Dates: end: 20121104
  5. ITRIZOLE [Concomitant]
     Indication: FUNGAL INFECTION
     Dosage: FORMULATION: POR,200 MG, QD
     Route: 048
     Dates: end: 20121104
  6. LUPRAC [Concomitant]
     Indication: OEDEMA
     Dosage: 2 MG, QD, FORMULATION: POR
     Route: 048
     Dates: end: 20121104
  7. TAKEPRON [Concomitant]
     Indication: GASTRITIS
     Dosage: 30 MG, QD
     Route: 048
     Dates: end: 20121104
  8. FLIVAS [Concomitant]
     Dosage: 25 MG, QD, FORMULATION: POR
     Route: 048
     Dates: end: 20121104
  9. MUCODYNE [Concomitant]
     Indication: PNEUMONIA
     Dosage: 1500 MG, QD, FORMULATION: POR
     Route: 048
     Dates: end: 20121104
  10. SELBEX [Concomitant]
     Indication: GASTRITIS
     Dosage: 150 MG, QD FORMULATION: POR; DIVIDED DOSE FREQUENY UNKNOWN
     Route: 048
     Dates: end: 20121104
  11. URSO [Concomitant]
     Indication: LIVER DISORDER
     Dosage: 300 MG, QD, FORMULATION: POR: DIVIDED DOSE FREQUENY UNKNOWN
     Route: 048
     Dates: end: 20121104
  12. LYRICA [Concomitant]
     Indication: PAIN
     Dosage: 75 MG, QD, FORMULATION: POR; DIVIDED DOSE FREQUENY UNKNOWN
     Route: 048
     Dates: end: 20121104
  13. MAGLAX [Concomitant]
     Indication: CONSTIPATION
     Dosage: 750 MG, QD, FORMULATION: POR;  DIVIDED DOSE FREQUENY UNKNOWN
     Route: 048
     Dates: end: 20121104
  14. MALFA [Concomitant]
     Indication: GASTRITIS
     Dosage: 160 ML, QD, FORMULATION : POR;  DIVIDED DOSE FREQUENY UNKNOWN
     Route: 048
     Dates: end: 20121104

REACTIONS (1)
  - Death [Fatal]
